FAERS Safety Report 9066505 (Version 1)
Quarter: 2013Q1

REPORT INFORMATION
  Report Type: Spontaneous
  Country: US (occurrence: US)
  Receive Date: 20130214
  Receipt Date: 20130214
  Transmission Date: 20140127
  Serious: Yes (Death)
  Sender: FDA-Public Use
  Company Number: US-BANPHARM-20130724

PATIENT
  Age: 62 Year
  Sex: Female

DRUGS (5)
  1. IBUPROFEN UNKNOWN PRODUCT [Suspect]
  2. CODEINE [Suspect]
  3. CHLORDIAZEPOXIDE [Suspect]
  4. DESIPRAMINE [Suspect]
  5. LAXATIVE [Suspect]

REACTIONS (1)
  - Completed suicide [Fatal]
